FAERS Safety Report 8111962-3 (Version None)
Quarter: 2012Q1

REPORT INFORMATION
  Report Type: 
  Country: None (occurrence: None)
  Receive Date: 20120203
  Receipt Date: 20111006
  Transmission Date: 20120608
  Serious: No
  Sender: FDA-Public Use
  Company Number: US-GLAXOSMITHKLINE-A0947972A

PATIENT
  Age: 73 Year
  Sex: Male
  Weight: 78.2 kg

DRUGS (3)
  1. COUMADIN [Concomitant]
  2. ARIXTRA [Suspect]
     Indication: PULMONARY EMBOLISM
     Dosage: 7.5MG PER DAY
     Route: 058
     Dates: start: 20110510, end: 20110701
  3. UNKNOWN CANCER THERAPY DRUG [Suspect]
     Route: 065

REACTIONS (2)
  - HYPERSENSITIVITY [None]
  - RASH [None]
